FAERS Safety Report 20689527 (Version 1)
Quarter: 2022Q2

REPORT INFORMATION
  Report Type: Spontaneous
  Country: US (occurrence: None)
  Receive Date: 20220408
  Receipt Date: 20220408
  Transmission Date: 20220721
  Serious: Yes (Life-Threatening, Other)
  Sender: FDA-Public Use
  Company Number: US-MLMSERVICE-20220330-3465452-1

PATIENT
  Age: 88 Year
  Sex: Female

DRUGS (2)
  1. AMIODARONE [Suspect]
     Active Substance: AMIODARONE
     Indication: Atrial fibrillation
     Dosage: UNKNOWN
     Route: 065
  2. OXYGEN [Concomitant]
     Active Substance: OXYGEN
     Indication: Product used for unknown indication
     Dosage: SUPPLEMENTAL OXYGEN
     Route: 065

REACTIONS (8)
  - Sinus bradycardia [Unknown]
  - Pneumonitis [Unknown]
  - Hypoxia [Unknown]
  - Electrocardiogram QT prolonged [Unknown]
  - Ventricular extrasystoles [Unknown]
  - Syncope [Unknown]
  - Torsade de pointes [Unknown]
  - Pulmonary toxicity [Unknown]
